FAERS Safety Report 5360028-4 (Version None)
Quarter: 2007Q2

REPORT INFORMATION
  Report Type: 
  Country: None (occurrence: None)
  Receive Date: 20070618
  Receipt Date: 20070608
  Transmission Date: 20071010
  Serious: No
  Sender: FDA-Public Use
  Company Number: US-JNJFOC-20070602586

PATIENT
  Sex: Female
  Weight: 74.84 kg

DRUGS (6)
  1. INVEGA [Suspect]
     Indication: MOOD SWINGS
     Route: 048
  2. WELLBUTRIN [Concomitant]
     Indication: DEPRESSION
  3. KLONOPIN [Concomitant]
     Indication: ANXIETY
  4. ELAVIL [Concomitant]
     Indication: FIBROMYALGIA
  5. CELEBREX [Concomitant]
     Indication: ARTHRITIS
  6. HORMONE REPLACEMENT THERAPY [Concomitant]
     Indication: HYSTERECTOMY

REACTIONS (1)
  - FATIGUE [None]
